FAERS Safety Report 14092900 (Version 1)
Quarter: 2017Q4

REPORT INFORMATION
  Report Type: Spontaneous
  Country: FR (occurrence: FR)
  Receive Date: 20171016
  Receipt Date: 20171016
  Transmission Date: 20180321
  Serious: Yes (Hospitalization, Disabling)
  Sender: FDA-Public Use
  Company Number: FR-ROCHE-2006785

PATIENT
  Age: 67 Year
  Sex: Male

DRUGS (15)
  1. OXALIPLATIN ACCORD [Suspect]
     Active Substance: OXALIPLATIN
     Indication: MANTLE CELL LYMPHOMA
     Dosage: DATES OF CYCLES: CYCLE 1 - 13/JUN/2017, CYCLE 2 - 08/JUL/2017, CYCLE 3 - 09/AUG/2017
     Route: 041
     Dates: start: 20170613, end: 20170809
  2. HYDROCORTISONE. [Concomitant]
     Active Substance: HYDROCORTISONE
     Route: 037
     Dates: start: 20170808
  3. VINCRISTINE HOSPIRA [Suspect]
     Active Substance: VINCRISTINE
     Indication: MANTLE CELL LYMPHOMA
     Dosage: CYCLE 1 OF R-CHOP THERAPY RECEIVED FROM 06/SEP/2017 TO 10/SEP/2017
     Route: 041
     Dates: start: 20170906, end: 20170910
  4. BACTRIM [Concomitant]
     Active Substance: SULFAMETHOXAZOLE\TRIMETHOPRIM
     Route: 065
  5. LAMALINE [Concomitant]
     Active Substance: ACETAMINOPHEN\CAFFEINE\OPIUM
  6. MABTHERA [Suspect]
     Active Substance: RITUXIMAB
     Indication: MANTLE CELL LYMPHOMA
     Dosage: DATES OF CYCLES: CYCLE 1 - 13/JUN/2017, CYCLE 2 - 08/JUL/2017, CYCLE 3 - 09/AUG/2017
     Route: 041
     Dates: start: 20170613, end: 20170810
  7. DEXAMETHASONE. [Concomitant]
     Active Substance: DEXAMETHASONE
     Indication: MANTLE CELL LYMPHOMA
     Dosage: ON DAY 1 TO DAY 4 OF EACH 21 DAY CYCLE
     Route: 048
     Dates: start: 20170613
  8. MABTHERA [Suspect]
     Active Substance: RITUXIMAB
     Dosage: CYCLE 1 OF R-CHOP THERAPY
     Route: 042
     Dates: start: 20170906
  9. METHOTREXATE. [Suspect]
     Active Substance: METHOTREXATE
     Indication: MANTLE CELL LYMPHOMA
     Route: 037
     Dates: start: 20170808, end: 20170808
  10. ZELITREX [Concomitant]
     Active Substance: VALACYCLOVIR HYDROCHLORIDE
  11. SPECIAFOLDINE [Concomitant]
     Active Substance: FOLIC ACID
  12. ZARZIO [Concomitant]
     Active Substance: FILGRASTIM
  13. ZYLORIC [Concomitant]
     Active Substance: ALLOPURINOL
  14. INEXIUM [Concomitant]
     Active Substance: ESOMEPRAZOLE
  15. CYTARABINE ACCORD [Suspect]
     Active Substance: CYTARABINE
     Indication: MANTLE CELL LYMPHOMA
     Dosage: 3700 MG TWICE AT DAY 1 OF EACH 21 DAY CYCLE?DATES OF CYCLES: CYCLE 1 - 13/JUN/2017, CYCLE 2 - 08/JUL
     Route: 041
     Dates: start: 20170613, end: 20170809

REACTIONS (3)
  - Peripheral sensory neuropathy [Not Recovered/Not Resolved]
  - Ataxia [Not Recovered/Not Resolved]
  - Hypoaesthesia [Recovered/Resolved]

NARRATIVE: CASE EVENT DATE: 201707
